FAERS Safety Report 6035326-1 (Version None)
Quarter: 2009Q1

REPORT INFORMATION
  Report Type: 
  Country: None (occurrence: None)
  Receive Date: 20090108
  Receipt Date: 20081229
  Transmission Date: 20090719
  Serious: Yes (Other)
  Sender: FDA-Public Use
  Company Number: 2008SP026195

PATIENT
  Age: 74 Year
  Sex: Female

DRUGS (9)
  1. INTRON A [Suspect]
     Dosage: 18 MIU;, 18 MIU;
     Dates: start: 20080201, end: 20080723
  2. INTRON A [Suspect]
     Dosage: 18 MIU;, 18 MIU;
     Dates: start: 20081001
  3. ZAMENE                  (DEFLAZACORT) [Suspect]
  4. ALPRAZOLAM [Concomitant]
  5. DEPRELIO [Concomitant]
  6. FOSAVANCE [Concomitant]
  7. IDALPREM [Concomitant]
  8. RENITEC [Concomitant]
  9. ZANTAC [Concomitant]

REACTIONS (3)
  - MOBILITY DECREASED [None]
  - MYALGIA [None]
  - NERVOUSNESS [None]
